FAERS Safety Report 21670862 (Version 1)
Quarter: 2022Q4

REPORT INFORMATION
  Report Type: Spontaneous
  Country: EC (occurrence: EC)
  Receive Date: 20221202
  Receipt Date: 20221202
  Transmission Date: 20230113
  Serious: Yes (Death, Hospitalization, Other)
  Sender: FDA-Public Use
  Company Number: EC-BAXTER-2022BAX025554

PATIENT
  Age: 40 Year
  Sex: Male

DRUGS (1)
  1. DIANEAL PD-2 PERITONEAL DIALYSIS SOLUTION WITH DEXTROSE [Suspect]
     Active Substance: CALCIUM CHLORIDE\DEXTROSE\MAGNESIUM CHLORIDE\SODIUM CHLORIDE\SODIUM LACTATE
     Indication: Peritoneal dialysis
     Dosage: UNK
     Route: 033
     Dates: start: 202202, end: 20221121

REACTIONS (4)
  - Cardio-respiratory arrest [Fatal]
  - Seizure [Unknown]
  - Seizure [Unknown]
  - Hypertension [Unknown]

NARRATIVE: CASE EVENT DATE: 20221121
